FAERS Safety Report 15685344 (Version 1)
Quarter: 2018Q4

REPORT INFORMATION
  Report Type: Spontaneous
  Country: CA (occurrence: CA)
  Receive Date: 20181204
  Receipt Date: 20181204
  Transmission Date: 20190205
  Serious: Yes (Death, Other)
  Sender: FDA-Public Use
  Company Number: CA-ICU MEDICAL, INC.-ICU2018CA00161

PATIENT

DRUGS (2)
  1. MORPHINE SULFATE INJECTION [Suspect]
     Active Substance: MORPHINE SULFATE
     Indication: CANCER PAIN
     Dosage: 2 MILLIGRAM
     Route: 042
  2. HYDROMORPHONE HYDROCHLORIDE. [Suspect]
     Active Substance: HYDROMORPHONE HYDROCHLORIDE
     Indication: CANCER PAIN
     Dosage: 3.0 MILLIGRAM
     Route: 042

REACTIONS (4)
  - Accidental overdose [Fatal]
  - Apnoea [Unknown]
  - Somnolence [Unknown]
  - Product name confusion [Unknown]
